FAERS Safety Report 14393910 (Version 1)
Quarter: 2018Q1

REPORT INFORMATION
  Report Type: Report from Study
  Country: GB (occurrence: GB)
  Receive Date: 20180116
  Receipt Date: 20180116
  Transmission Date: 20180509
  Serious: Yes (Other)
  Sender: FDA-Public Use
  Company Number: GB-MYLANLABS-2018M1002607

PATIENT
  Age: 38 Month
  Sex: Male

DRUGS (2)
  1. MELPHALAN. [Suspect]
     Active Substance: MELPHALAN
     Indication: RETINOBLASTOMA
     Dosage: INTRA-ARTERIAL INJECTION IN THE OPHTHALMIC ARTERY; THREE CYCLES
     Route: 013
  2. TOPOTECAN [Concomitant]
     Active Substance: TOPOTECAN HYDROCHLORIDE
     Indication: RETINOBLASTOMA
     Dosage: INTRA-ARTERIAL INJECTION IN THE OPHTHALMIC ARTERY; THREE CYCLES
     Route: 013

REACTIONS (2)
  - VIth nerve paralysis [Recovering/Resolving]
  - Ischaemia [Unknown]
